FAERS Safety Report 7994776-4 (Version None)
Quarter: 2011Q4

REPORT INFORMATION
  Report Type: 
  Country: None (occurrence: None)
  Receive Date: 20111220
  Receipt Date: 20111216
  Transmission Date: 20120403
  Serious: Yes (Hospitalization)
  Sender: FDA-Public Use
  Company Number: DE-ROCHE-1014377

PATIENT
  Sex: Female
  Weight: 58 kg

DRUGS (17)
  1. LOPERAMIDE HCL [Concomitant]
     Dates: start: 20111028
  2. CARBOPLATIN [Suspect]
     Route: 042
     Dates: end: 20111207
  3. IMODIUM [Concomitant]
     Dates: start: 20111116
  4. LOPERAMIDE HCL [Concomitant]
     Dates: start: 20111103, end: 20111214
  5. PACLITAXEL [Suspect]
     Route: 042
     Dates: end: 20111207
  6. DOXORUBICIN HCL [Suspect]
     Indication: BREAST CANCER
     Dosage: TEMPORARILY INTERRUPTED
     Route: 042
     Dates: start: 20111020, end: 20111116
  7. LAPATINIB [Suspect]
     Route: 048
     Dates: start: 20111120, end: 20111207
  8. METOCLOPRAMIDE [Concomitant]
     Dates: start: 20111103, end: 20111214
  9. HERCEPTIN [Suspect]
     Indication: BREAST CANCER
     Route: 042
     Dates: start: 20111020, end: 20111116
  10. PACLITAXEL [Suspect]
     Indication: BREAST CANCER
     Dosage: TEMPORARILY INTERRUPTED
     Route: 042
     Dates: start: 20111020, end: 20111116
  11. DOXORUBICIN HCL [Suspect]
     Route: 042
     Dates: end: 20111207
  12. VOMEX A [Concomitant]
     Dates: start: 20111116
  13. HERCEPTIN [Suspect]
     Route: 042
     Dates: end: 20111207
  14. CARBOPLATIN [Suspect]
     Indication: BREAST CANCER
     Dosage: TEMPORARILY INTERRUPTED
     Route: 042
     Dates: start: 20111020, end: 20111116
  15. LAPATINIB [Suspect]
     Indication: BREAST CANCER
     Dosage: TEMPORARILY INTERRUPTED
     Route: 048
     Dates: start: 20111020, end: 20111116
  16. ACETAMINOPHEN [Concomitant]
     Dates: start: 20111116
  17. FORTECORTIN [Concomitant]
     Dates: start: 20111130, end: 20111214

REACTIONS (5)
  - VOMITING [None]
  - FATIGUE [None]
  - NEUTROPENIA [None]
  - NAUSEA [None]
  - DYSPNOEA [None]
